FAERS Safety Report 13531292 (Version 2)
Quarter: 2017Q2

REPORT INFORMATION
  Report Type: Spontaneous
  Country: US (occurrence: US)
  Receive Date: 20170510
  Receipt Date: 20170616
  Transmission Date: 20170830
  Serious: No
  Sender: FDA-Public Use
  Company Number: US-PFIZER INC-2017200643

PATIENT
  Age: 77 Year
  Sex: Female
  Weight: 59 kg

DRUGS (4)
  1. LISINOPRIL AND HYDROCHLOROTHIAZIDE [Concomitant]
     Active Substance: HYDROCHLOROTHIAZIDE\LISINOPRIL
     Indication: HYPERTENSION
     Dosage: 1X/DAY
     Route: 048
  2. EUCRISA [Suspect]
     Active Substance: CRISABOROLE
     Indication: SEBORRHOEIC DERMATITIS
     Dosage: 2 %, PUT ON THE AFTECTED AREAS
     Dates: start: 20170301
  3. EUCRISA [Suspect]
     Active Substance: CRISABOROLE
     Dosage: 1X/DAY
     Route: 061
     Dates: start: 20170318
  4. SYMBICORT [Concomitant]
     Active Substance: BUDESONIDE\FORMOTEROL FUMARATE DIHYDRATE
     Indication: ASTHMA
     Dosage: 2 DF, 1X/DAY, (2 PUFFS)

REACTIONS (3)
  - Pain [Recovered/Resolved]
  - Product use in unapproved indication [Unknown]
  - Administration site pain [Not Recovered/Not Resolved]

NARRATIVE: CASE EVENT DATE: 20170301
